FAERS Safety Report 6114994-X (Version None)
Quarter: 2009Q1

REPORT INFORMATION
  Report Type: 
  Country: None (occurrence: None)
  Receive Date: 20090313
  Receipt Date: 20090303
  Transmission Date: 20090719
  Serious: Yes (Other)
  Sender: FDA-Public Use
  Company Number: US-JNJFOC-20090300949

PATIENT
  Age: 75 Year
  Sex: Female

DRUGS (12)
  1. INFLIXIMAB [Suspect]
     Indication: RHEUMATOID ARTHRITIS
     Route: 042
  2. PREDNISONE [Concomitant]
  3. ATENOLOL [Concomitant]
  4. HYDROCHLOTHIAZIDE [Concomitant]
  5. TRIAMTERENE [Concomitant]
  6. CLONAZEPAM [Concomitant]
  7. PIOGLITAZONE [Concomitant]
  8. AMLODIPINE [Concomitant]
  9. EZETIMIBE [Concomitant]
  10. SIMVASTATIN [Concomitant]
  11. GLIPIZIDE [Concomitant]
  12. HYDROCODONE PLUS ACETAMINOPHEN [Concomitant]

REACTIONS (1)
  - HISTOPLASMOSIS [None]
